FAERS Safety Report 6110234-6 (Version None)
Quarter: 2009Q1

REPORT INFORMATION
  Report Type: 
  Country: None (occurrence: None)
  Receive Date: 20090310
  Receipt Date: 20090302
  Transmission Date: 20090719
  Serious: Yes (Other)
  Sender: FDA-Public Use
  Company Number: PHEH2009US02272

PATIENT
  Sex: Female
  Weight: 50.34 kg

DRUGS (1)
  1. RECLAST [Suspect]
     Dosage: 5 MG YEARLY
     Route: 042

REACTIONS (2)
  - HEART RATE INCREASED [None]
  - HEART RATE IRREGULAR [None]
